FAERS Safety Report 14917216 (Version 2)
Quarter: 2018Q2

REPORT INFORMATION
  Report Type: Spontaneous
  Country: DE (occurrence: DE)
  Receive Date: 20180521
  Receipt Date: 20180524
  Transmission Date: 20180711
  Serious: Yes (Life-Threatening, Hospitalization, Disabling, Other)
  Sender: FDA-Public Use
  Company Number: DE-TEVA-2018-DE-893387

PATIENT
  Age: 53 Year
  Sex: Female

DRUGS (15)
  1. TERIFLUNOMIDE [Suspect]
     Active Substance: TERIFLUNOMIDE
     Indication: MULTIPLE SCLEROSIS
     Dosage: 14 MILLIGRAM DAILY;
     Route: 048
     Dates: start: 201506
  2. PANTOPRAZOL [Concomitant]
     Active Substance: PANTOPRAZOLE SODIUM
     Dosage: APPLICATION FOR A LONG TIME.
     Route: 065
  3. FAMPRIDIN [Concomitant]
     Dosage: SINGLE ONE
     Route: 065
     Dates: end: 201711
  4. CLEXANE [Concomitant]
     Active Substance: ENOXAPARIN SODIUM
     Dosage: 40 MILLIGRAM DAILY;
     Route: 065
     Dates: start: 201709
  5. TIZANIDIN [Suspect]
     Active Substance: TIZANIDINE HYDROCHLORIDE
     Indication: MULTIPLE SCLEROSIS
     Route: 048
     Dates: start: 201711, end: 201712
  6. GABAPENTIN. [Concomitant]
     Active Substance: GABAPENTIN
     Dosage: 1800 MILLIGRAM DAILY;
     Route: 065
     Dates: start: 201704
  7. CALCIUM/VITAMIN D 880 MG/1000 IE [Concomitant]
     Dosage: 1 DOSAGE FORMS DAILY;
     Route: 065
     Dates: start: 201706
  8. BACLOFEN. [Concomitant]
     Active Substance: BACLOFEN
     Dosage: 60 MILLIGRAM DAILY;
     Route: 065
     Dates: start: 201612
  9. AMITRIPTYLIN [Concomitant]
     Active Substance: AMITRIPTYLINE
     Dosage: 25 MILLIGRAM DAILY;
     Route: 065
     Dates: start: 201711
  10. AMITRIPTYLINE [Suspect]
     Active Substance: AMITRIPTYLINE
     Route: 048
     Dates: start: 201711, end: 201712
  11. TROSPIUM CHLORID [Concomitant]
     Dosage: 30 MILLIGRAM DAILY;
     Route: 065
     Dates: start: 201701
  12. VENLAFAXINE [Suspect]
     Active Substance: VENLAFAXINE HYDROCHLORIDE
     Dosage: 37.5 MILLIGRAM DAILY;
     Route: 048
     Dates: start: 201711, end: 201712
  13. MAGNESIUM BRAUSE [Concomitant]
     Route: 065
  14. TILIDIN 50 MG/4 MG [Concomitant]
     Dosage: 3 DOSAGE FORMS DAILY;
     Route: 065
     Dates: start: 201711, end: 201711
  15. TILIDIN 50 MG/4 MG [Concomitant]
     Route: 065

REACTIONS (2)
  - Hepatic failure [Recovered/Resolved with Sequelae]
  - Drug-induced liver injury [Unknown]

NARRATIVE: CASE EVENT DATE: 20180101
